FAERS Safety Report 7513636-6 (Version None)
Quarter: 2011Q2

REPORT INFORMATION
  Report Type: 
  Country: None (occurrence: None)
  Receive Date: 20110531
  Receipt Date: 20110520
  Transmission Date: 20111010
  Serious: Yes (Hospitalization, Other)
  Sender: FDA-Public Use
  Company Number: US-BAYER-201029741NA

PATIENT
  Age: 35 Year
  Sex: Female
  Weight: 84 kg

DRUGS (1)
  1. YASMIN [Suspect]
     Indication: PRODUCT USED FOR UNKNOWN INDICATION
     Dosage: UNK
     Route: 048
     Dates: start: 20080301, end: 20080715

REACTIONS (4)
  - CHEST PAIN [None]
  - PULMONARY EMBOLISM [None]
  - THROMBOSIS [None]
  - DYSPNOEA [None]
